FAERS Safety Report 22915837 (Version 3)
Quarter: 2023Q4

REPORT INFORMATION
  Report Type: Spontaneous
  Country: US (occurrence: US)
  Receive Date: 20230907
  Receipt Date: 20231116
  Transmission Date: 20240109
  Serious: No
  Sender: FDA-Public Use
  Company Number: US-TRAVERE-2023TVT00355

PATIENT
  Age: 40 Year
  Sex: Male

DRUGS (3)
  1. FILSPARI [Suspect]
     Active Substance: SPARSENTAN
     Indication: IgA nephropathy
     Dosage: 200 MG
     Route: 048
  2. FILSPARI [Suspect]
     Active Substance: SPARSENTAN
     Dosage: 200 MG
     Route: 048
  3. FILSPARI [Suspect]
     Active Substance: SPARSENTAN
     Dosage: 200 MG
     Route: 048

REACTIONS (5)
  - Urine odour abnormal [Unknown]
  - Brain fog [Recovered/Resolved]
  - Back pain [Recovered/Resolved]
  - Confusional state [Recovered/Resolved]
  - Product dose omission issue [Unknown]
